FAERS Safety Report 17291844 (Version 1)
Quarter: 2020Q1

REPORT INFORMATION
  Report Type: Spontaneous
  Country: CN (occurrence: CN)
  Receive Date: 20200121
  Receipt Date: 20200121
  Transmission Date: 20200409
  Serious: Yes (Hospitalization)
  Sender: FDA-Public Use
  Company Number: CN-BAYER-2019-215042

PATIENT
  Age: 69 Year
  Sex: Female
  Weight: 49.5 kg

DRUGS (6)
  1. AMINIC [ALANINE;ARGININE HYDROCHLORIDE;ASPARTIC ACID;GLUTAMIC ACID [Suspect]
     Active Substance: AMINO ACIDS
     Indication: MALNUTRITION
     Dosage: 20.65 G, QD
     Route: 041
     Dates: start: 20191112, end: 20191116
  2. LEVOFLOXACIN. [Suspect]
     Active Substance: LEVOFLOXACIN
     Indication: ANTI-INFECTIVE THERAPY
  3. AVELOX [Suspect]
     Active Substance: MOXIFLOXACIN HYDROCHLORIDE
     Indication: PNEUMONIA
     Dosage: 0.4 G, QD
     Route: 041
     Dates: start: 20191115, end: 20191117
  4. MEDIUM AND LONG CHAIN FAT EMULSION INJECTION (C8-24VE) [Suspect]
     Active Substance: GLYCERIN\MEDIUM-CHAIN TRIGLYCERIDES\PHOSPHOLIPID\SOYBEAN OIL
     Indication: MALNUTRITION
     Dosage: 25 G, QD
     Route: 041
     Dates: start: 20191112, end: 20191116
  5. AVELOX [Suspect]
     Active Substance: MOXIFLOXACIN HYDROCHLORIDE
     Indication: ANTI-INFECTIVE THERAPY
  6. LEVOFLOXACIN. [Suspect]
     Active Substance: LEVOFLOXACIN
     Indication: PNEUMONIA
     Dosage: 0.5 G, QD
     Route: 041
     Dates: start: 20191113, end: 20191113

REACTIONS (3)
  - Pruritus [Recovering/Resolving]
  - Rash [Recovering/Resolving]
  - Pyrexia [Recovered/Resolved]

NARRATIVE: CASE EVENT DATE: 20191112
